FAERS Safety Report 14277953 (Version 3)
Quarter: 2018Q1

REPORT INFORMATION
  Report Type: Spontaneous
  Country: US (occurrence: US)
  Receive Date: 20171212
  Receipt Date: 20180219
  Transmission Date: 20180508
  Serious: No
  Sender: FDA-Public Use
  Company Number: US-009507513-1711USA008862

PATIENT
  Age: 17 Year
  Sex: Female
  Weight: 48.53 kg

DRUGS (1)
  1. NEXPLANON [Suspect]
     Active Substance: ETONOGESTREL
     Dosage: 68 MG, ONE ROD PER 3 YEARS, IN THE LEFT ARM
     Route: 059
     Dates: start: 20171116, end: 20171116

REACTIONS (5)
  - Product quality issue [Unknown]
  - Device deployment issue [Recovered/Resolved]
  - Device expulsion [Recovered/Resolved]
  - No adverse event [Unknown]
  - Device difficult to use [Unknown]

NARRATIVE: CASE EVENT DATE: 20171116
